FAERS Safety Report 5835210-X (Version None)
Quarter: 2008Q3

REPORT INFORMATION
  Report Type: 
  Country: None (occurrence: None)
  Receive Date: 20080804
  Receipt Date: 20080721
  Transmission Date: 20090109
  Serious: Yes (Life-Threatening, Hospitalization)
  Sender: FDA-Public Use
  Company Number: 2008BI018538

PATIENT
  Age: 62 Year
  Sex: Female

DRUGS (6)
  1. ZEVALIN [Suspect]
     Indication: B-CELL LYMPHOMA
     Dosage: 0.4 MCI: 1X; IV
     Route: 042
     Dates: start: 20080625, end: 20080625
  2. MABTHERA (CON.) [Concomitant]
  3. BCNU (CON.) [Concomitant]
  4. ARACYTINE (CON.) [Concomitant]
  5. ETOPOSIDE (CON.) [Concomitant]
  6. ALKERAN (CON.) [Concomitant]

REACTIONS (5)
  - BLOOD CREATINE PHOSPHOKINASE INCREASED [None]
  - BLOOD CREATININE INCREASED [None]
  - BLOOD UREA INCREASED [None]
  - MULTI-ORGAN FAILURE [None]
  - TROPONIN INCREASED [None]
